FAERS Safety Report 5490253-3 (Version None)
Quarter: 2007Q4

REPORT INFORMATION
  Report Type: 
  Country: None (occurrence: None)
  Receive Date: 20071015
  Receipt Date: 20070618
  Transmission Date: 20080405
  Serious: No
  Sender: FDA-Public Use
  Company Number: 2007SP002281

PATIENT
  Age: 47 Year
  Sex: Male
  Weight: 74.8435 kg

DRUGS (6)
  1. LUNESTA [Suspect]
     Indication: INSOMNIA
     Dosage: 2 MG;PRN;ORAL   3 MG;PRN;ORAL
     Route: 048
     Dates: start: 20060601, end: 20060601
  2. LUNESTA [Suspect]
     Indication: INSOMNIA
     Dosage: 2 MG;PRN;ORAL   3 MG;PRN;ORAL
     Route: 048
     Dates: start: 20060601, end: 20060601
  3. PEGASYS [Concomitant]
  4. COPEGUS [Concomitant]
  5. DEPAKOTE [Concomitant]
  6. TEGRETOL [Concomitant]

REACTIONS (1)
  - INITIAL INSOMNIA [None]
